FAERS Safety Report 10861867 (Version 1)
Quarter: 2015Q1

REPORT INFORMATION
  Report Type: Spontaneous
  Country: GR (occurrence: GR)
  Receive Date: 20150224
  Receipt Date: 20150224
  Transmission Date: 20150721
  Serious: Yes (Other)
  Sender: FDA-Public Use
  Company Number: GR-CIPLA LTD.-2015GR01313

PATIENT

DRUGS (2)
  1. ERLOTINIB [Suspect]
     Active Substance: ERLOTINIB
     Indication: ADENOCARCINOMA PANCREAS
     Dosage: 100 MG, QD
  2. GEMCITABINE [Suspect]
     Active Substance: GEMCITABINE\GEMCITABINE HYDROCHLORIDE
     Indication: ADENOCARCINOMA PANCREAS
     Dosage: 1000 MG/M2 ON DAYS 1, 8, 15 AND EVERY 28 DAYS

REACTIONS (3)
  - Polymyositis [Recovered/Resolved]
  - Disease progression [Recovered/Resolved]
  - Pancreatic carcinoma recurrent [Unknown]
